FAERS Safety Report 5312690-X (Version None)
Quarter: 2007Q2

REPORT INFORMATION
  Report Type: 
  Country: None (occurrence: None)
  Receive Date: 20070430
  Receipt Date: 20070424
  Transmission Date: 20071010
  Serious: Yes (Other)
  Sender: FDA-Public Use
  Company Number: 2007UW08029

PATIENT
  Age: 29 Year
  Sex: Female

DRUGS (4)
  1. SEROQUEL [Suspect]
     Route: 048
  2. SEROQUEL [Suspect]
     Dosage: LOWER DOSE
     Route: 048
  3. ALBUTEROL [Concomitant]
  4. SEREVENT [Concomitant]

REACTIONS (3)
  - DYSPHAGIA [None]
  - FOOD CRAVING [None]
  - THROAT TIGHTNESS [None]
